FAERS Safety Report 11826821 (Version 2)
Quarter: 2016Q1

REPORT INFORMATION
  Report Type: Spontaneous
  Country: SE (occurrence: SE)
  Receive Date: 20151211
  Receipt Date: 20160104
  Transmission Date: 20160525
  Serious: Yes (Disabling, Other)
  Sender: FDA-Public Use
  Company Number: SE-ENDO PHARMACEUTICALS INC.-2015-004791

PATIENT
  Sex: Male

DRUGS (1)
  1. FORTESTA [Suspect]
     Active Substance: TESTOSTERONE
     Indication: HYPOGONADISM
     Route: 065

REACTIONS (2)
  - Infertility male [Unknown]
  - Sperm concentration zero [Recovered/Resolved]
